FAERS Safety Report 8172892-4 (Version None)
Quarter: 2012Q1

REPORT INFORMATION
  Report Type: 
  Country: None (occurrence: None)
  Receive Date: 20120229
  Receipt Date: 20120229
  Transmission Date: 20120608
  Serious: Yes (Other)
  Sender: FDA-Public Use
  Company Number: None

PATIENT
  Age: 25 Year
  Sex: Female
  Weight: 113.39 kg

DRUGS (1)
  1. OXYCONTIN [Suspect]
     Indication: PAIN MANAGEMENT
     Dosage: 1 TABLET
     Dates: start: 20111201, end: 20120120

REACTIONS (3)
  - MOOD SWINGS [None]
  - SUICIDAL IDEATION [None]
  - DEPRESSION [None]
